FAERS Safety Report 13225520 (Version 1)
Quarter: 2017Q1

REPORT INFORMATION
  Report Type: Spontaneous
  Country: US (occurrence: US)
  Receive Date: 20170210
  Receipt Date: 20170210
  Transmission Date: 20170428
  Serious: Yes (Death)
  Sender: FDA-Public Use
  Company Number: None

PATIENT
  Age: 62 Year
  Sex: Male

DRUGS (22)
  1. COQ [Concomitant]
  2. LIPITOR [Concomitant]
     Active Substance: ATORVASTATIN CALCIUM
  3. TACROLIMUS 1MG [Suspect]
     Active Substance: TACROLIMUS
     Indication: LUNG TRANSPLANT
     Route: 048
     Dates: start: 20160912
  4. TACROLIMUS 0.5MG [Suspect]
     Active Substance: TACROLIMUS
     Indication: LUNG TRANSPLANT
     Route: 048
     Dates: start: 20160819
  5. PREDNISONE 5MG [Suspect]
     Active Substance: PREDNISONE
     Indication: LUNG TRANSPLANT
     Dosage: LOT 4649413
     Route: 048
     Dates: start: 2016
  6. ASPIRIN. [Concomitant]
     Active Substance: ASPIRIN
  7. CENTRUM [Concomitant]
     Active Substance: VITAMINS
  8. ITRACONAZOLE. [Concomitant]
     Active Substance: ITRACONAZOLE
  9. RANITIDNE [Concomitant]
  10. FISH OIL [Concomitant]
     Active Substance: FISH OIL
  11. FOLIC ACID. [Concomitant]
     Active Substance: FOLIC ACID
  12. VALCYTE [Concomitant]
     Active Substance: VALGANCICLOVIR HYDROCHLORIDE
  13. VALGANCICLOVIR 450MG [Suspect]
     Active Substance: VALACYCLOVIR HYDROCHLORIDE
     Indication: LUNG TRANSPLANT
     Route: 048
     Dates: start: 2016
  14. CULTURELLE [Concomitant]
     Active Substance: LACTOBACILLUS RHAMNOSUS
  15. ALLEGRAN ANDROGEL [Concomitant]
  16. VITAMIN K [Concomitant]
     Active Substance: PHYTONADIONE
  17. ZETONNA [Concomitant]
     Active Substance: CICLESONIDE
  18. MAGNESIUM [Concomitant]
     Active Substance: MAGNESIUM
  19. AZITHROMYCIN ANHYDROUS. [Concomitant]
     Active Substance: AZITHROMYCIN ANHYDROUS
  20. BACTRIM [Concomitant]
     Active Substance: SULFAMETHOXAZOLE\TRIMETHOPRIM
  21. DEXILANT [Concomitant]
     Active Substance: DEXLANSOPRAZOLE
  22. METOPROLOL TARTRATE. [Concomitant]
     Active Substance: METOPROLOL TARTRATE

REACTIONS (1)
  - Death [None]

NARRATIVE: CASE EVENT DATE: 20170131
